FAERS Safety Report 23642624 (Version 1)
Quarter: 2024Q1

REPORT INFORMATION
  Report Type: Spontaneous
  Country: GB (occurrence: GB)
  Receive Date: 20240318
  Receipt Date: 20240318
  Transmission Date: 20240410
  Serious: Yes (Death)
  Sender: FDA-Public Use
  Company Number: GB-TEVA-VS-3169971

PATIENT
  Sex: Male

DRUGS (9)
  1. BENDAMUSTINE [Suspect]
     Active Substance: BENDAMUSTINE
     Indication: Chronic lymphocytic leukaemia
     Dosage: RECEIVED 3 CYCLES
     Route: 065
  2. BENDAMUSTINE [Suspect]
     Active Substance: BENDAMUSTINE
     Indication: Chronic lymphocytic leukaemia
     Dosage: RECEIVED 1 CYCLE
     Route: 065
     Dates: start: 202108, end: 202111
  3. IBRUTINIB [Suspect]
     Active Substance: IBRUTINIB
     Indication: Paraneoplastic syndrome
     Route: 065
     Dates: start: 202209
  4. CYCLOPHOSPHAMIDE [Suspect]
     Active Substance: CYCLOPHOSPHAMIDE
     Indication: Chronic lymphocytic leukaemia
     Dosage: RECEIVED 1 CYCLE AS PART OF RCD REGIMEN
     Route: 065
     Dates: start: 202108, end: 202111
  5. CYCLOPHOSPHAMIDE [Suspect]
     Active Substance: CYCLOPHOSPHAMIDE
     Indication: Chronic lymphocytic leukaemia
     Dosage: RECEIVED 3 CYCLES
     Route: 065
  6. DEXAMETHASONE [Suspect]
     Active Substance: DEXAMETHASONE
     Indication: Chronic lymphocytic leukaemia
     Dosage: RECEIVED 1 CYCLE AS PART OF RCD REGIMEN
     Route: 065
     Dates: start: 202108, end: 202111
  7. DEXAMETHASONE [Suspect]
     Active Substance: DEXAMETHASONE
     Indication: Chronic lymphocytic leukaemia
     Dosage: RECEIVED 3 CYCLES
     Route: 065
  8. RITUXIMAB [Suspect]
     Active Substance: RITUXIMAB
     Indication: Chronic lymphocytic leukaemia
     Dosage: RECEIVED 3 CYCLES
     Route: 065
  9. RITUXIMAB [Suspect]
     Active Substance: RITUXIMAB
     Indication: Chronic lymphocytic leukaemia
     Dosage: RECEIVED 1 CYCLE AS PART OF?RCD REGIMEN AND 3 CYCLES WITH BENDAMUSTINE
     Route: 065
     Dates: start: 202108, end: 202111

REACTIONS (1)
  - Drug ineffective [Fatal]

NARRATIVE: CASE EVENT DATE: 20230101
